FAERS Safety Report 24888742 (Version 1)
Quarter: 2025Q1

REPORT INFORMATION
  Report Type: Spontaneous
  Country: US (occurrence: None)
  Receive Date: 20250124
  Receipt Date: 20250124
  Transmission Date: 20250409
  Serious: No
  Sender: FDA-CTU
  Company Number: None

PATIENT
  Age: 82 Year
  Sex: Female

DRUGS (1)
  1. POMALYST [Suspect]
     Active Substance: POMALIDOMIDE
     Indication: Plasma cell myeloma
     Dosage: 2MG QD ORAL ?
     Route: 048
     Dates: start: 20241003

REACTIONS (2)
  - Neuropathy peripheral [None]
  - Condition aggravated [None]

NARRATIVE: CASE EVENT DATE: 20250121
